FAERS Safety Report 5386728-8 (Version None)
Quarter: 2007Q3

REPORT INFORMATION
  Report Type: 
  Country: None (occurrence: None)
  Receive Date: 20070713
  Receipt Date: 20070702
  Transmission Date: 20080115
  Serious: Yes (Other)
  Sender: FDA-Public Use
  Company Number: GB-ASTRAZENECA-2007GB01380

PATIENT
  Age: 21 Year
  Sex: Female

DRUGS (1)
  1. SEROQUEL [Suspect]
     Route: 048
     Dates: start: 20070503, end: 20070601

REACTIONS (5)
  - EYE DISORDER [None]
  - MUSCULOSKELETAL STIFFNESS [None]
  - TARDIVE DYSKINESIA [None]
  - TREMOR [None]
  - VISION BLURRED [None]
